FAERS Safety Report 5589626-X (Version None)
Quarter: 2008Q1

REPORT INFORMATION
  Report Type: 
  Country: None (occurrence: None)
  Receive Date: 20080114
  Receipt Date: 20080103
  Transmission Date: 20080703
  Serious: Yes (Other)
  Sender: FDA-Public Use
  Company Number: B0359598A

PATIENT
  Age: 14 Year
  Sex: Female

DRUGS (4)
  1. SEROXAT [Suspect]
     Indication: DEPRESSION
     Route: 065
     Dates: start: 19980513, end: 20040901
  2. CIPRAMIL [Concomitant]
     Dates: start: 20041021
  3. EFFEXOR [Concomitant]
     Dates: start: 20041116
  4. TRIMIPRAMINE MALEATE [Concomitant]
     Dates: start: 19981030

REACTIONS (21)
  - AGGRESSION [None]
  - AGITATION [None]
  - DEPRESSION [None]
  - DISTURBANCE IN ATTENTION [None]
  - DIZZINESS [None]
  - DRUG WITHDRAWAL SYNDROME [None]
  - FATIGUE [None]
  - FEELING ABNORMAL [None]
  - HEADACHE [None]
  - HYPERHIDROSIS [None]
  - INFLUENZA [None]
  - INSOMNIA [None]
  - LETHARGY [None]
  - MEMORY IMPAIRMENT [None]
  - MOOD SWINGS [None]
  - NAUSEA [None]
  - PARAESTHESIA [None]
  - SUICIDAL BEHAVIOUR [None]
  - TEARFULNESS [None]
  - TREMOR [None]
  - VERTIGO [None]
